FAERS Safety Report 15114440 (Version 1)
Quarter: 2018Q3

REPORT INFORMATION
  Report Type: Spontaneous
  Country: CN (occurrence: CN)
  Receive Date: 20180706
  Receipt Date: 20180706
  Transmission Date: 20181010
  Serious: Yes (Other)
  Sender: FDA-Public Use
  Company Number: CN-009507513-1806CHN012781

PATIENT
  Age: 52 Year
  Sex: Male
  Weight: 75 kg

DRUGS (15)
  1. ROCURONIUM BROMIDE. [Suspect]
     Active Substance: ROCURONIUM BROMIDE
     Dosage: 70 MG, UNK
     Dates: start: 201708, end: 201708
  2. ATROPINE. [Suspect]
     Active Substance: ATROPINE
     Dosage: 1 MG, UNK
     Dates: start: 201708
  3. TRIPTERYGIUM [Concomitant]
     Indication: RHEUMATOID ARTHRITIS
     Dosage: UNK
     Route: 048
  4. FENTANYL. [Suspect]
     Active Substance: FENTANYL
     Dosage: 0.2 MG, UNK
     Dates: start: 201708
  5. REMIFENTANIL HYDROCHLORIDE. [Suspect]
     Active Substance: REMIFENTANIL HYDROCHLORIDE
     Dosage: 800 MICROGRAM/H
     Route: 042
     Dates: start: 201708, end: 201708
  6. MELOXICAM. [Concomitant]
     Active Substance: MELOXICAM
     Indication: RHEUMATOID ARTHRITIS
     Dosage: UNK
     Route: 048
  7. PROPOFOL. [Suspect]
     Active Substance: PROPOFOL
     Indication: SEDATION
     Dosage: 150 MG, UNK
     Route: 042
     Dates: start: 201708, end: 201708
  8. ATROPINE. [Suspect]
     Active Substance: ATROPINE
     Indication: SECRETION DISCHARGE
     Dosage: 0.5 MG, UNK
     Dates: start: 201708, end: 201708
  9. PROPOFOL. [Suspect]
     Active Substance: PROPOFOL
     Dosage: 400 MG/H
     Route: 042
     Dates: start: 201708, end: 201708
  10. PREDNISONE. [Concomitant]
     Active Substance: PREDNISONE
     Indication: RHEUMATOID ARTHRITIS
     Dosage: UNK
     Route: 048
  11. DEXAMETHASONE. [Suspect]
     Active Substance: DEXAMETHASONE
     Indication: PROPHYLAXIS
     Dosage: 10 MG, UNK
     Dates: start: 201708
  12. ALFACALCIDOL [Concomitant]
     Active Substance: ALFACALCIDOL
     Indication: RHEUMATOID ARTHRITIS
     Dosage: UNK
     Route: 048
  13. PROPOFOL. [Suspect]
     Active Substance: PROPOFOL
     Dosage: UNK
     Route: 042
     Dates: start: 201708
  14. REMIFENTANIL HYDROCHLORIDE. [Suspect]
     Active Substance: REMIFENTANIL HYDROCHLORIDE
     Dosage: UNK
     Route: 042
     Dates: start: 201708
  15. PROPOFOL. [Suspect]
     Active Substance: PROPOFOL
     Dosage: 100 MG, UNK
     Route: 042
     Dates: start: 201708, end: 201708

REACTIONS (1)
  - Endotracheal intubation complication [Recovered/Resolved]

NARRATIVE: CASE EVENT DATE: 201708
